FAERS Safety Report 14109910 (Version 1)
Quarter: 2017Q4

REPORT INFORMATION
  Report Type: Spontaneous
  Country: US (occurrence: US)
  Receive Date: 20171020
  Receipt Date: 20171020
  Transmission Date: 20180321
  Serious: No
  Sender: FDA-Public Use
  Company Number: US-TEVA-743610ACC

PATIENT
  Age: 35 Year
  Sex: Female

DRUGS (1)
  1. EQUATE MICONAZOLE 3 [Suspect]
     Active Substance: MICONAZOLE
     Dates: start: 20170126, end: 20170128

REACTIONS (1)
  - Drug ineffective [Unknown]

NARRATIVE: CASE EVENT DATE: 20170130
